FAERS Safety Report 8390284-X (Version None)
Quarter: 2012Q2

REPORT INFORMATION
  Report Type: 
  Country: None (occurrence: None)
  Receive Date: 20120518
  Receipt Date: 20120507
  Transmission Date: 20120825
  Serious: Yes (Hospitalization)
  Sender: FDA-Public Use
  Company Number: 2012SP024325

PATIENT
  Age: 44 Year
  Sex: Male

DRUGS (5)
  1. ISENTRESS [Concomitant]
  2. COPEGUS [Concomitant]
  3. VICTRELIS [Suspect]
     Indication: HEPATITIS C
     Dosage: 1.2 GM;TID;PO
     Route: 048
     Dates: start: 20120210, end: 20120227
  4. TRUVADA [Concomitant]
  5. PEGASYS [Concomitant]

REACTIONS (9)
  - FACE OEDEMA [None]
  - OEDEMA PERIPHERAL [None]
  - CHOLELITHIASIS [None]
  - URINARY BLADDER POLYP [None]
  - ASCITES [None]
  - PORTAL HYPERTENSION [None]
  - ANGIOPATHY [None]
  - LIVER DISORDER [None]
  - HEPATIC CIRRHOSIS [None]
